FAERS Safety Report 5865192-6 (Version None)
Quarter: 2008Q3

REPORT INFORMATION
  Report Type: 
  Country: None (occurrence: None)
  Receive Date: 20080829
  Receipt Date: 20080805
  Transmission Date: 20090109
  Serious: No
  Sender: FDA-Public Use
  Company Number: B0508543A

PATIENT
  Age: 69 Year
  Sex: Female
  Weight: 69 kg

DRUGS (2)
  1. TYKERB [Suspect]
     Dosage: 1250MG PER DAY
     Route: 048
     Dates: start: 20070531
  2. XELODA [Suspect]
     Dosage: 2000MG PER DAY
     Route: 048
     Dates: start: 20070531

REACTIONS (2)
  - DERMATITIS EXFOLIATIVE [None]
  - DIARRHOEA [None]
